FAERS Safety Report 11097210 (Version 1)
Quarter: 2015Q2

REPORT INFORMATION
  Report Type: Spontaneous
  Country: US (occurrence: None)
  Receive Date: 20150506
  Receipt Date: 20150506
  Transmission Date: 20150821
  Serious: Yes (Other)
  Sender: FDA-Public Use
  Company Number: None

PATIENT
  Age: 65 Year
  Sex: Female

DRUGS (2)
  1. GLEEVEC [Suspect]
     Active Substance: IMATINIB MESYLATE
     Indication: GASTROINTESTINAL CARCINOMA
     Route: 048
     Dates: start: 20150429, end: 20150501
  2. GLEEVEC [Suspect]
     Active Substance: IMATINIB MESYLATE
     Indication: GASTROINTESTINAL DISORDER
     Route: 048
     Dates: start: 20150429, end: 20150501

REACTIONS (3)
  - Drug hypersensitivity [None]
  - Rash erythematous [None]
  - Rash pruritic [None]

NARRATIVE: CASE EVENT DATE: 20150501
